FAERS Safety Report 4774949-4 (Version None)
Quarter: 2005Q3

REPORT INFORMATION
  Report Type: 
  Country: None (occurrence: None)
  Receive Date: 20050920
  Receipt Date: 20050906
  Transmission Date: 20060218
  Serious: Yes (Hospitalization)
  Sender: FDA-Public Use
  Company Number: 2005P1000380

PATIENT
  Age: 72 Year
  Sex: Male
  Weight: 82 kg

DRUGS (7)
  1. RETEVASE [Suspect]
     Indication: MYOCARDIAL INFARCTION
     Dosage: IV
     Route: 042
     Dates: start: 20041227, end: 20041227
  2. ABCIMAB (ABIXIMAB) [Suspect]
     Indication: MYOCARDIAL INFARCTION
     Dosage: IV
     Route: 042
     Dates: start: 20041227
  3. ASPIRIN [Concomitant]
  4. CLOPIDOGREL [Concomitant]
  5. SIMVASTATIN [Concomitant]
  6. BETAXOLOL [Concomitant]
  7. CILAZAPRIL [Concomitant]

REACTIONS (3)
  - ESCHERICHIA INFECTION [None]
  - THROMBOCYTOPENIA [None]
  - UROSEPSIS [None]
